FAERS Safety Report 9028852 (Version 1)
Quarter: 2013Q1

REPORT INFORMATION
  Report Type: Report from Study
  Country: CA (occurrence: CA)
  Receive Date: 20130124
  Receipt Date: 20130124
  Transmission Date: 20140127
  Serious: Yes (Hospitalization)
  Sender: FDA-Public Use
  Company Number: CA-JNJFOC-20130107738

PATIENT
  Sex: Male
  Weight: 77.3 kg

DRUGS (10)
  1. REMICADE [Suspect]
     Indication: CROHN^S DISEASE
     Route: 042
     Dates: start: 20050421
  2. PENTOXYFILLIN [Concomitant]
     Route: 065
  3. SEROQUEL [Concomitant]
     Route: 065
  4. 6 MP [Concomitant]
     Route: 065
  5. PANTOLOC [Concomitant]
     Route: 065
  6. METHADONE [Concomitant]
     Route: 065
  7. IMOVANE [Concomitant]
     Route: 065
  8. DOCUSATE [Concomitant]
     Route: 065
  9. HYDROMORPHONE [Concomitant]
     Route: 065
  10. OXYCONTIN [Concomitant]
     Route: 065

REACTIONS (2)
  - Thrombosis [Unknown]
  - Abscess intestinal [Unknown]
